FAERS Safety Report 26012075 (Version 2)
Quarter: 2025Q4

REPORT INFORMATION
  Report Type: Spontaneous
  Country: US (occurrence: US)
  Receive Date: 20251107
  Receipt Date: 20251202
  Transmission Date: 20260118
  Serious: No
  Sender: NOVARTIS
  Company Number: US-002147023-NVSC2025US168456

PATIENT
  Age: 78 Year
  Sex: Male

DRUGS (3)
  1. LEQVIO [Suspect]
     Active Substance: INCLISIRAN SODIUM
     Indication: Hyperlipidaemia
     Dosage: 300 MG (DOSE 0, THEN 3 MONTHS LATER, THEN Q6 MONTHS) (FIRST DOSE)
     Route: 058
     Dates: start: 20250117
  2. LEQVIO [Suspect]
     Active Substance: INCLISIRAN SODIUM
     Dosage: 300 MG (2ND DOSE)
     Route: 058
     Dates: start: 20250418
  3. LEQVIO [Suspect]
     Active Substance: INCLISIRAN SODIUM
     Dosage: UNK (3RD DOSE)
     Route: 058
     Dates: start: 20251022

REACTIONS (1)
  - Drug ineffective [Unknown]

NARRATIVE: CASE EVENT DATE: 20251029
